FAERS Safety Report 19705338 (Version 1)
Quarter: 2021Q3

REPORT INFORMATION
  Report Type: Spontaneous
  Country: JP (occurrence: JP)
  Receive Date: 20210816
  Receipt Date: 20210816
  Transmission Date: 20211014
  Serious: Yes (Hospitalization, Other)
  Sender: FDA-Public Use
  Company Number: JP-VALIDUS PHARMACEUTICALS LLC-JP-VDP-2021-000302

PATIENT
  Age: 5 Year
  Sex: Female
  Weight: 13.8 kg

DRUGS (6)
  1. DIAZOXIDE [Suspect]
     Active Substance: DIAZOXIDE
     Indication: HYPERINSULINAEMIA
     Dosage: 5 MG/KG, QD
     Route: 065
  2. SPIRONOLACTONE. [Concomitant]
     Active Substance: SPIRONOLACTONE
     Indication: HEART VALVE INCOMPETENCE
     Dosage: UNK
     Route: 065
  3. LASIX [Suspect]
     Active Substance: FUROSEMIDE
     Indication: AORTIC VALVE INCOMPETENCE
  4. ENALAPRIL MALEATE. [Concomitant]
     Active Substance: ENALAPRIL MALEATE
     Indication: PRODUCT USED FOR UNKNOWN INDICATION
     Dosage: UNK
     Route: 065
  5. LASIX [Suspect]
     Active Substance: FUROSEMIDE
     Indication: HEART VALVE INCOMPETENCE
     Dosage: 1 MG/KG, QD
     Route: 048
  6. SPIRONOLACTONE. [Concomitant]
     Active Substance: SPIRONOLACTONE
     Indication: AORTIC VALVE INCOMPETENCE

REACTIONS (15)
  - Acute kidney injury [Unknown]
  - Hypernatraemia [Unknown]
  - Weight decreased [Unknown]
  - Hyperglycaemic hyperosmolar nonketotic syndrome [Unknown]
  - Hypoglycaemia [Recovered/Resolved]
  - Polyuria [Unknown]
  - Hypovolaemic shock [Unknown]
  - Altered state of consciousness [Recovering/Resolving]
  - Lethargy [Unknown]
  - Dehydration [Unknown]
  - Hypoglycaemia [Unknown]
  - Tachycardia [Unknown]
  - Hyperosmolar state [Unknown]
  - Hyperglycaemia [Recovered/Resolved]
  - Dry mouth [Unknown]
